FAERS Safety Report 9091462 (Version 1)
Quarter: 2013Q1

REPORT INFORMATION
  Report Type: Report from Study
  Country: US (occurrence: US)
  Receive Date: 20130131
  Receipt Date: 20130131
  Transmission Date: 20140127
  Serious: No
  Sender: FDA-Public Use
  Company Number: US-ABBOTT-12P-163-0990612-00

PATIENT
  Age: 51 Year
  Sex: Female

DRUGS (21)
  1. HUMIRA PEN [Suspect]
     Indication: PSORIASIS
     Dates: start: 20120917
  2. HUMIRA PEN [Suspect]
     Dates: start: 20120924
  3. APIDRA [Concomitant]
     Indication: PRODUCT USED FOR UNKNOWN INDICATION
     Dosage: SLIDING SCALE
  4. LANTUS [Concomitant]
     Indication: PRODUCT USED FOR UNKNOWN INDICATION
  5. GLUCOPHAGE XR [Concomitant]
     Indication: DIABETES MELLITUS
     Dosage: 2500MG DAILY
  6. NEXIUM [Concomitant]
     Indication: PRODUCT USED FOR UNKNOWN INDICATION
     Dosage: IN A.M.
  7. ZANTAC [Concomitant]
     Indication: GASTROOESOPHAGEAL REFLUX DISEASE
     Dosage: AT BEDTIME
  8. ALTASE [Concomitant]
     Indication: HYPERTENSION
  9. COREG [Concomitant]
     Indication: HYPERTENSION
     Route: 048
  10. PAXIL CR [Concomitant]
     Indication: DEPRESSION
     Dosage: 37.5MG DAILY
  11. KLONOPIN [Concomitant]
     Indication: ANXIETY
     Dosage: .25 MG X 2 TABS AT BEDIME
  12. CRESTOR [Concomitant]
     Indication: BLOOD CHOLESTEROL INCREASED
     Dosage: 20 MG DAILY
  13. ZETIA [Concomitant]
     Indication: BLOOD CHOLESTEROL INCREASED
     Dosage: 10MG DAILY
  14. TRICOR [Concomitant]
     Indication: BLOOD TRIGLYCERIDES INCREASED
     Dosage: 125MG DAILY
  15. LOVAZA [Concomitant]
     Indication: BLOOD TRIGLYCERIDES INCREASED
     Dosage: 4 CAPS DAILY
  16. NIASPAN (COATED) [Concomitant]
     Indication: HIGH DENSITY LIPOPROTEIN
     Dosage: 1500MG DAILY
  17. LOVOXYL [Concomitant]
     Indication: HYPOTHYROIDISM
     Dosage: 25 MCG DAILY
  18. ASA [Concomitant]
     Indication: PROPHYLAXIS
     Dosage: 81MG DAILY
  19. VITAMIN D NOS [Concomitant]
     Indication: VITAMIN D DECREASED
  20. NIFEREX FORTE [Concomitant]
     Indication: BLOOD IRON DECREASED
     Dosage: 1 DAILY
  21. B-12 [Concomitant]
     Indication: PRODUCT USED FOR UNKNOWN INDICATION
     Dosage: MONTHLY

REACTIONS (2)
  - Diarrhoea [Recovering/Resolving]
  - Diarrhoea [Recovering/Resolving]
